FAERS Safety Report 5108647-4 (Version None)
Quarter: 2006Q3

REPORT INFORMATION
  Report Type: 
  Country: None (occurrence: None)
  Receive Date: 20060915
  Receipt Date: 20060901
  Transmission Date: 20061208
  Serious: Yes (Hospitalization, Other)
  Sender: FDA-Public Use
  Company Number: 2006AL002644

PATIENT
  Age: 65 Year
  Sex: Female

DRUGS (5)
  1. DICLOFENAC [Suspect]
     Dosage: 50 MG; TID
     Route: 048
  2. HYDROCORTISONE [Concomitant]
  3. RANITIDINE [Concomitant]
  4. FOLIC ACID [Concomitant]
  5. METHOTREXATE [Concomitant]

REACTIONS (4)
  - ABDOMINAL SEPSIS [None]
  - GASTROINTESTINAL DISORDER [None]
  - MUCOSAL ULCERATION [None]
  - SMALL INTESTINAL PERFORATION [None]
